FAERS Safety Report 7727654-6 (Version None)
Quarter: 2011Q3

REPORT INFORMATION
  Report Type: 
  Country: None (occurrence: None)
  Receive Date: 20110902
  Receipt Date: 20110830
  Transmission Date: 20111222
  Serious: Yes (Hospitalization)
  Sender: FDA-Public Use
  Company Number: FR-PFIZER INC-2011201535

PATIENT
  Age: 50 Year
  Sex: Female

DRUGS (4)
  1. DESLORATADINE [Concomitant]
     Dosage: UNK
     Dates: start: 20110815, end: 20110816
  2. VISIPAQUE [Suspect]
     Dosage: 90 ML, SINGLE
     Route: 042
     Dates: start: 20110817, end: 20110817
  3. PREDNISOLONE [Concomitant]
     Dosage: UNK
     Dates: start: 20110815, end: 20110817
  4. SOLU-MEDROL [Suspect]
     Indication: PREMEDICATION
     Dosage: UNK
     Route: 042
     Dates: start: 20110817, end: 20110817

REACTIONS (6)
  - PRURITUS GENERALISED [None]
  - SKIN PLAQUE [None]
  - FORMICATION [None]
  - TACHYCARDIA [None]
  - PRESYNCOPE [None]
  - MALAISE [None]
